FAERS Safety Report 18638041 (Version 2)
Quarter: 2021Q1

REPORT INFORMATION
  Report Type: Report from Study
  Country: US (occurrence: US)
  Receive Date: 20201218
  Receipt Date: 20210217
  Transmission Date: 20210419
  Serious: Yes (Hospitalization, Other)
  Sender: FDA-Public Use
  Company Number: US-JNJFOC-20201046738

PATIENT
  Age: 48 Year
  Sex: Female
  Weight: 68.1 kg

DRUGS (3)
  1. MACITENTAN [Suspect]
     Active Substance: MACITENTAN
     Indication: PULMONARY HYPERTENSION
     Route: 048
  2. EPOPROSTENOL SODIUM. [Suspect]
     Active Substance: EPOPROSTENOL SODIUM
     Indication: PULMONARY HYPERTENSION
     Route: 042
  3. ADEMPAS [Concomitant]
     Active Substance: RIOCIGUAT

REACTIONS (9)
  - Gait disturbance [Unknown]
  - Complication associated with device [Unknown]
  - Diarrhoea [Unknown]
  - Sepsis [Unknown]
  - Pyrexia [Unknown]
  - Device related infection [Unknown]
  - Mobility decreased [Unknown]
  - Kidney infection [Unknown]
  - Asthenia [Unknown]

NARRATIVE: CASE EVENT DATE: 20201123
